FAERS Safety Report 5883318-5 (Version None)
Quarter: 2008Q3

REPORT INFORMATION
  Report Type: 
  Country: None (occurrence: None)
  Receive Date: 20080911
  Receipt Date: 20080911
  Transmission Date: 20090109
  Serious: Yes (Other)
  Sender: FDA-Public Use
  Company Number: None

PATIENT
  Age: 43 Year
  Weight: 79.3795 kg

DRUGS (2)
  1. CYMBALTA [Suspect]
     Indication: PREMENSTRUAL SYNDROME
     Dosage: 60 MG DAILY PO, 30 MG DAILY PO
     Route: 048
     Dates: start: 20060101, end: 20080801
  2. CYMBALTA [Suspect]
     Indication: PREMENSTRUAL SYNDROME
     Dosage: 60 MG DAILY PO, 30 MG DAILY PO
     Route: 048
     Dates: start: 20080802, end: 20080905

REACTIONS (11)
  - ANOREXIA [None]
  - BALANCE DISORDER [None]
  - COORDINATION ABNORMAL [None]
  - DIARRHOEA [None]
  - DIZZINESS [None]
  - FALL [None]
  - GAIT DISTURBANCE [None]
  - IMPAIRED DRIVING ABILITY [None]
  - INSOMNIA [None]
  - TINNITUS [None]
  - TREMOR [None]
